FAERS Safety Report 25140929 (Version 1)
Quarter: 2025Q2

REPORT INFORMATION
  Report Type: Spontaneous
  Country: US (occurrence: None)
  Receive Date: 20250331
  Receipt Date: 20250331
  Transmission Date: 20250717
  Serious: Yes (Hospitalization)
  Sender: FDA-CTU
  Company Number: None

PATIENT
  Sex: Female

DRUGS (5)
  1. TEZSPIRE [Suspect]
     Active Substance: TEZEPELUMAB-EKKO
     Indication: Asthma
     Route: 058
     Dates: start: 20240907
  2. ALBUTEROL [Concomitant]
     Active Substance: ALBUTEROL
  3. FOLIC ACID [Concomitant]
     Active Substance: FOLIC ACID
  4. LYRICA [Concomitant]
     Active Substance: PREGABALIN
  5. MOUNJARO [Concomitant]
     Active Substance: TIRZEPATIDE

REACTIONS (1)
  - Lung disorder [None]
